FAERS Safety Report 7658684-0 (Version None)
Quarter: 2011Q3

REPORT INFORMATION
  Report Type: 
  Country: None (occurrence: None)
  Receive Date: 20110804
  Receipt Date: 20110804
  Transmission Date: 20111222
  Serious: Yes (Life-Threatening, Hospitalization)
  Sender: FDA-Public Use
  Company Number: None

PATIENT
  Age: 91 Year
  Sex: Female
  Weight: 65.7716 kg

DRUGS (1)
  1. PROLIA [Suspect]
     Dosage: 1
     Dates: start: 20110401

REACTIONS (5)
  - ULCER HAEMORRHAGE [None]
  - PNEUMONIA [None]
  - BLOOD SODIUM DECREASED [None]
  - PERICARDIAL EFFUSION [None]
  - CYSTITIS [None]
